FAERS Safety Report 7880877-8 (Version None)
Quarter: 2011Q4

REPORT INFORMATION
  Report Type: 
  Country: None (occurrence: None)
  Receive Date: 20111101
  Receipt Date: 20111021
  Transmission Date: 20120403
  Serious: Yes (Other)
  Sender: FDA-Public Use
  Company Number: CA-BAXTER-2011BH026835

PATIENT
  Sex: Female

DRUGS (1)
  1. GAMMAGARD LIQUID [Suspect]
     Indication: HYPOGAMMAGLOBULINAEMIA
     Route: 042
     Dates: start: 20060601

REACTIONS (6)
  - ADVERSE DRUG REACTION [None]
  - LARYNGITIS [None]
  - NAUSEA [None]
  - HEMIPLEGIA [None]
  - CHILLS [None]
  - HEADACHE [None]
